FAERS Safety Report 7443573-7 (Version None)
Quarter: 2011Q2

REPORT INFORMATION
  Report Type: 
  Country: None (occurrence: None)
  Receive Date: 20110428
  Receipt Date: 20110421
  Transmission Date: 20111010
  Serious: Yes (Hospitalization)
  Sender: FDA-Public Use
  Company Number: DE-AMGEN-DEUSP2011019745

PATIENT
  Age: 63 Year
  Sex: Female
  Weight: 84 kg

DRUGS (12)
  1. DOXEPIN [Concomitant]
  2. THYRONAJOD [Concomitant]
  3. TNF ALPHA BLOCKERS [Concomitant]
  4. DEKRISTOL [Concomitant]
  5. PROLIA [Suspect]
     Indication: OSTEOPOROSIS POSTMENOPAUSAL
     Dosage: 60 MG, UNK
     Route: 058
     Dates: start: 20101216, end: 20101216
  6. PREDNISOLON                        /00016201/ [Concomitant]
     Dosage: 10 MG, UNK
  7. SIMPONI [Concomitant]
     Dosage: 50 MG, UNK
  8. TILIDIN [Concomitant]
  9. OMEPRAZOLE [Concomitant]
  10. ARAVA [Concomitant]
     Dosage: 20 MG, UNK
  11. ARCOXIA [Concomitant]
  12. KATADOLON                          /00890102/ [Concomitant]

REACTIONS (3)
  - BARTHOLIN'S ABSCESS [None]
  - FURUNCLE [None]
  - DRUG INTERACTION [None]
